FAERS Safety Report 24092933 (Version 1)
Quarter: 2024Q3

REPORT INFORMATION
  Report Type: Spontaneous
  Country: CN (occurrence: CN)
  Receive Date: 20240715
  Receipt Date: 20240715
  Transmission Date: 20241016
  Serious: Yes (Other)
  Sender: BAXTER
  Company Number: None

PATIENT
  Age: 2 Year
  Sex: Male
  Weight: 13 kg

DRUGS (3)
  1. SODIUM CHLORIDE [Suspect]
     Active Substance: SODIUM CHLORIDE
     Indication: Pneumonia
     Dosage: 100 ML, BID (DOSAGE FORM: INJECTION) (0.9% SODIUM CHLORIDE USED TO DILUTE CEFUROXIME SODIUM FOR INJE
     Route: 041
     Dates: start: 20240616, end: 20240616
  2. SODIUM CHLORIDE [Suspect]
     Active Substance: SODIUM CHLORIDE
     Indication: Medication dilution
  3. CEFUROXIME SODIUM [Suspect]
     Active Substance: CEFUROXIME SODIUM
     Indication: Pneumonia
     Dosage: 0.400000 G, TWICE DAILY, (DOSAGE FORM: INJECTION) (CEFUROXIME SODIUM FOR INJECTION 0.4G, DILUTED IN
     Route: 041
     Dates: start: 20240616, end: 20240616

REACTIONS (2)
  - Drug eruption [Unknown]
  - Rash [Recovering/Resolving]

NARRATIVE: CASE EVENT DATE: 20240616
